FAERS Safety Report 9510346 (Version 1)
Quarter: 2013Q3

REPORT INFORMATION
  Report Type: Spontaneous
  Country: US (occurrence: US)
  Receive Date: 20130909
  Receipt Date: 20130909
  Transmission Date: 20140515
  Serious: No
  Sender: FDA-Public Use
  Company Number: US-BRISTOL-MYERS SQUIBB COMPANY-17443995

PATIENT
  Age: 73 Year
  Sex: Female
  Weight: 83.44 kg

DRUGS (8)
  1. ABILIFY [Suspect]
     Indication: DEPRESSION
     Dosage: PRESCRIPTION#:  6012193
  2. SYNTHROID [Concomitant]
     Indication: MENOPAUSE
  3. VERAPAMIL [Concomitant]
     Dosage: 2 PILLS
  4. HCTZ [Concomitant]
  5. FOSAMAX [Concomitant]
  6. HYDROCODONE [Concomitant]
     Indication: NERVE INJURY
     Dosage: HYDROCODONE APAP 10MG/325MG
  7. OXYBUTYNIN [Concomitant]
     Indication: BLADDER SPASM
  8. GABAPENTIN [Concomitant]
     Indication: NERVE INJURY

REACTIONS (2)
  - Somnolence [Unknown]
  - Dizziness [Unknown]
